FAERS Safety Report 8371610-4 (Version None)
Quarter: 2012Q2

REPORT INFORMATION
  Report Type: 
  Country: None (occurrence: None)
  Receive Date: 20120518
  Receipt Date: 20120508
  Transmission Date: 20120825
  Serious: No
  Sender: FDA-Public Use
  Company Number: US-ASTRAZENECA-2012SE25519

PATIENT
  Sex: Male

DRUGS (1)
  1. PULMICORT FLEXHALER [Suspect]
     Indication: ASTHMA
     Dosage: 180MCG ONE PUFF DAILY
     Route: 055

REACTIONS (3)
  - OFF LABEL USE [None]
  - DRUG EFFECT DECREASED [None]
  - DYSPNOEA [None]
